FAERS Safety Report 9553482 (Version 1)
Quarter: 2013Q3

REPORT INFORMATION
  Report Type: Spontaneous
  Country: LB (occurrence: LB)
  Receive Date: 20130925
  Receipt Date: 20130925
  Transmission Date: 20140515
  Serious: Yes (Other)
  Sender: FDA-Public Use
  Company Number: LB-ACTAVIS-2013-16491

PATIENT
  Age: 27 Year
  Sex: Male

DRUGS (5)
  1. FLUDARABINE (UNKNOWN) [Suspect]
     Indication: PRODUCT USED FOR UNKNOWN INDICATION
     Dosage: 30 MG/M2/DAY, ON DAYS -6,-5,-4 AND -3
     Route: 042
  2. CYCLOPHOSPHAMIDE (UNKNOWN) [Suspect]
     Indication: PRODUCT USED FOR UNKNOWN INDICATION
     Dosage: 300 MG/M2/DAY, ON DAYS -6,-5,-4 AND -3
     Route: 042
  3. MYCOPHENOLATE MOFETIL (UNKNOWN) [Suspect]
     Indication: PROPHYLAXIS AGAINST GRAFT VERSUS HOST DISEASE
     Dosage: 750 MG, BID
     Route: 048
  4. THYMOGLOBULIN [Suspect]
     Indication: PRODUCT USED FOR UNKNOWN INDICATION
     Dosage: 3.75 MG/KG/DAY, ON DAYS -4 AND -3
     Route: 042
  5. CYCLOSPORINE [Suspect]
     Indication: PROPHYLAXIS AGAINST GRAFT VERSUS HOST DISEASE
     Dosage: 3 MG/KG/DAY, DIVIDED IN 2 DOSES, ON DAY -3
     Route: 065

REACTIONS (2)
  - Cytomegalovirus infection [Recovered/Resolved]
  - Epstein-Barr virus infection [Recovered/Resolved]
